FAERS Safety Report 6152277 (Version 45)
Quarter: 2015Q2

REPORT INFORMATION
  Report Type: Spontaneous
  Country: US (occurrence: US)
  Receive Date: 20061024
  Receipt Date: 20150428
  Transmission Date: 20150821
  Serious: Yes (Other)
  Sender: FDA-Public Use
  Company Number: PHEH2006US12894

PATIENT
  Sex: Male
  Weight: 81.63 kg

DRUGS (35)
  1. AVELOX [Concomitant]
     Active Substance: MOXIFLOXACIN HYDROCHLORIDE
     Indication: PRODUCT USED FOR UNKNOWN INDICATION
     Dosage: 1 DF, QD
     Route: 048
  2. AMPICILLIN [Concomitant]
     Active Substance: AMPICILLIN
     Indication: PRODUCT USED FOR UNKNOWN INDICATION
     Dosage: 1 DF, QD
     Route: 048
  3. ZOMETA [Suspect]
     Active Substance: ZOLEDRONIC ACID
     Indication: METASTASIS
     Dosage: 4 MG,
     Route: 042
     Dates: start: 2004, end: 200509
  4. LUPRON [Concomitant]
     Active Substance: LEUPROLIDE ACETATE
     Indication: PRODUCT USED FOR UNKNOWN INDICATION
     Route: 065
  5. CASODEX [Concomitant]
     Active Substance: BICALUTAMIDE
     Indication: PRODUCT USED FOR UNKNOWN INDICATION
     Route: 065
     Dates: start: 2004
  6. ANTIBIOTICS [Concomitant]
     Active Substance: UNSPECIFIED INGREDIENT
     Indication: PRODUCT USED FOR UNKNOWN INDICATION
     Route: 065
  7. XYZAL [Concomitant]
     Active Substance: LEVOCETIRIZINE DIHYDROCHLORIDE
     Indication: PRODUCT USED FOR UNKNOWN INDICATION
     Route: 065
  8. OFLOXACIN. [Concomitant]
     Active Substance: OFLOXACIN
     Indication: PRODUCT USED FOR UNKNOWN INDICATION
     Route: 065
  9. ASTELIN [Concomitant]
     Active Substance: AZELASTINE HYDROCHLORIDE
     Indication: PRODUCT USED FOR UNKNOWN INDICATION
     Route: 048
  10. ZOMETA [Suspect]
     Active Substance: ZOLEDRONIC ACID
     Indication: PROSTATE CANCER
  11. ZOMETA [Suspect]
     Active Substance: ZOLEDRONIC ACID
     Indication: PLASMA CELL MYELOMA
  12. TOPROL XL [Concomitant]
     Active Substance: METOPROLOL SUCCINATE
     Indication: PRODUCT USED FOR UNKNOWN INDICATION
     Dosage: 1 DF, QD
     Route: 065
  13. HYDROCODONE [Concomitant]
     Active Substance: HYDROCODONE
     Indication: PRODUCT USED FOR UNKNOWN INDICATION
     Route: 065
  14. CLINDAMYCIN [Suspect]
     Active Substance: CLINDAMYCIN\CLINDAMYCIN PHOSPHATE
     Indication: PRODUCT USED FOR UNKNOWN INDICATION
     Dosage: 1 DF, QD
     Route: 065
     Dates: start: 200911
  15. CODEINE [Concomitant]
     Active Substance: CODEINE
     Indication: PRODUCT USED FOR UNKNOWN INDICATION
     Route: 065
  16. FLOMAX [Concomitant]
     Active Substance: TAMSULOSIN HYDROCHLORIDE
     Indication: PRODUCT USED FOR UNKNOWN INDICATION
     Route: 048
  17. CIPRO [Concomitant]
     Active Substance: CIPROFLOXACIN HYDROCHLORIDE
     Indication: PRODUCT USED FOR UNKNOWN INDICATION
     Dosage: 500 MG, QD
     Route: 048
  18. LIPITOR [Concomitant]
     Active Substance: ATORVASTATIN CALCIUM
     Indication: PRODUCT USED FOR UNKNOWN INDICATION
     Dosage: 1 DF, QD
     Route: 065
  19. RHINOCORT AQUA [Concomitant]
     Active Substance: BUDESONIDE
     Indication: PRODUCT USED FOR UNKNOWN INDICATION
     Route: 045
  20. FLUCONAZOLE. [Concomitant]
     Active Substance: FLUCONAZOLE
     Indication: PRODUCT USED FOR UNKNOWN INDICATION
     Dosage: 1 DF, QD
     Route: 048
  21. CLODERM [Concomitant]
     Active Substance: CLOCORTOLONE PIVALATE
     Indication: PRODUCT USED FOR UNKNOWN INDICATION
     Route: 061
  22. HYDROCORTISONE. [Concomitant]
     Active Substance: HYDROCORTISONE
     Indication: PRODUCT USED FOR UNKNOWN INDICATION
     Route: 065
  23. NIFEREX (POLYSACCHARIDE-IRON COMPLEX) [Concomitant]
     Active Substance: IRON\POLYSACCHARIDES
     Indication: PRODUCT USED FOR UNKNOWN INDICATION
     Dosage: 1 DF, QD
     Route: 065
  24. LORAZEPAM. [Concomitant]
     Active Substance: LORAZEPAM
     Indication: PRODUCT USED FOR UNKNOWN INDICATION
     Route: 065
  25. TRIAMTEREN [Concomitant]
     Active Substance: TRIAMTERENE
     Indication: PRODUCT USED FOR UNKNOWN INDICATION
     Route: 048
  26. PREVACID [Concomitant]
     Active Substance: LANSOPRAZOLE
     Indication: PRODUCT USED FOR UNKNOWN INDICATION
     Dosage: 1 DF, BID
     Route: 048
  27. DOXYCYCLINE. [Concomitant]
     Active Substance: DOXYCYCLINE
     Indication: PRODUCT USED FOR UNKNOWN INDICATION
     Dosage: 1 DF, QD
     Route: 048
  28. LOPRESSOR [Concomitant]
     Active Substance: METOPROLOL TARTRATE
     Indication: HYPERTENSION
     Dosage: 1 DF, QD
     Route: 048
  29. MONOPRIL [Concomitant]
     Active Substance: FOSINOPRIL SODIUM
     Indication: PRODUCT USED FOR UNKNOWN INDICATION
     Route: 048
  30. LEVAQUIN [Concomitant]
     Active Substance: LEVOFLOXACIN
     Indication: PRODUCT USED FOR UNKNOWN INDICATION
     Dosage: 500 MG, QD
     Route: 048
  31. CHLORHEXIDINE [Concomitant]
     Active Substance: CHLORHEXIDINE
     Indication: PRODUCT USED FOR UNKNOWN INDICATION
     Route: 065
  32. NASACORT [Concomitant]
     Active Substance: TRIAMCINOLONE ACETONIDE
     Indication: PRODUCT USED FOR UNKNOWN INDICATION
     Route: 045
  33. PROTOPIC [Concomitant]
     Active Substance: TACROLIMUS
     Indication: PRODUCT USED FOR UNKNOWN INDICATION
     Route: 061
  34. HYDROCHLOROTHIAZIDE. [Concomitant]
     Active Substance: HYDROCHLOROTHIAZIDE
     Indication: PRODUCT USED FOR UNKNOWN INDICATION
     Route: 065
  35. FOLIC ACID. [Concomitant]
     Active Substance: FOLIC ACID
     Indication: PRODUCT USED FOR UNKNOWN INDICATION
     Route: 065

REACTIONS (128)
  - Gingival cyst [Unknown]
  - Arthralgia [Unknown]
  - Back pain [Unknown]
  - Serratia infection [Unknown]
  - Exposed bone in jaw [Unknown]
  - Colon adenoma [Unknown]
  - Pulmonary granuloma [Unknown]
  - Glaucoma [Unknown]
  - Vitiligo [Unknown]
  - Haematuria [Unknown]
  - Tinnitus [Unknown]
  - Tinea pedis [Unknown]
  - Oedema mouth [Unknown]
  - Sinus bradycardia [Unknown]
  - Parakeratosis [Unknown]
  - Myofascial pain syndrome [Unknown]
  - Carpal tunnel syndrome [Unknown]
  - Soft tissue disorder [Unknown]
  - Joint effusion [Unknown]
  - Stress [Unknown]
  - Haemorrhoidal haemorrhage [Unknown]
  - Dyspnoea [Unknown]
  - Ear disorder [Unknown]
  - Upper-airway cough syndrome [Unknown]
  - Polyuria [Unknown]
  - Nephrolithiasis [Unknown]
  - Vitreous degeneration [Unknown]
  - Pinguecula [Unknown]
  - Melanosis [Unknown]
  - Tooth fracture [Unknown]
  - Swelling face [Unknown]
  - Hypoaesthesia [Unknown]
  - Scoliosis [Unknown]
  - Bursitis [Unknown]
  - Neurodermatitis [Unknown]
  - Pigmentation disorder [Unknown]
  - Laryngitis [Unknown]
  - Upper respiratory tract infection [Unknown]
  - Gait disturbance [Unknown]
  - Renal disorder [Unknown]
  - Dental plaque [Unknown]
  - Paraesthesia [Unknown]
  - Osteolysis [Unknown]
  - Anaemia [Unknown]
  - Otitis media [Unknown]
  - Osteochondrosis [Unknown]
  - Chronic sinusitis [Unknown]
  - Tongue discolouration [Unknown]
  - Onychomadesis [Unknown]
  - Dry eye [Unknown]
  - Nasal turbinate hypertrophy [Unknown]
  - Spinal osteoarthritis [Unknown]
  - Bundle branch block right [Unknown]
  - Bundle branch block left [Unknown]
  - Onychomycosis [Unknown]
  - Cheilitis [Unknown]
  - Fatigue [Unknown]
  - Skin irritation [Unknown]
  - Impaired healing [Unknown]
  - Dysplasia [Unknown]
  - Dental caries [Unknown]
  - Abscess [Unknown]
  - Osteoarthritis [Unknown]
  - Renal cyst [Unknown]
  - Lumbar spine flattening [Unknown]
  - Intervertebral disc degeneration [Unknown]
  - Pulmonary calcification [Unknown]
  - Intestinal mucosal hypertrophy [Unknown]
  - Dysplastic naevus [Unknown]
  - Nasal congestion [Unknown]
  - Tooth discolouration [Unknown]
  - Pruritus [Unknown]
  - Oral discomfort [Unknown]
  - Inflammation [Unknown]
  - Tooth disorder [Unknown]
  - Fistula [Unknown]
  - Intervertebral disc protrusion [Unknown]
  - Facial pain [Unknown]
  - Gynaecomastia [Unknown]
  - Constipation [Unknown]
  - Sleep disorder [Unknown]
  - Chest pain [Unknown]
  - Discomfort [Unknown]
  - Astigmatism [Unknown]
  - Bone pain [Unknown]
  - Aortic calcification [Unknown]
  - Skin candida [Recovered/Resolved]
  - Skin hyperpigmentation [Unknown]
  - Aortic aneurysm [Unknown]
  - Osteonecrosis of jaw [Unknown]
  - Pain in jaw [Unknown]
  - Purulent discharge [Unknown]
  - Gingival disorder [Unknown]
  - Ulcer [Unknown]
  - Deafness [Unknown]
  - Patellofemoral pain syndrome [Unknown]
  - Congenital knee deformity [Unknown]
  - Neuralgia [Unknown]
  - Dyslipidaemia [Unknown]
  - Visual impairment [Unknown]
  - Neck pain [Unknown]
  - Musculoskeletal pain [Unknown]
  - Sinus arrhythmia [Unknown]
  - Dry skin [Unknown]
  - Ureteric dilatation [Unknown]
  - Optic nerve cupping [Unknown]
  - Skin maceration [Unknown]
  - Macule [Unknown]
  - Purulence [Unknown]
  - Wound [Not Recovered/Not Resolved]
  - Osteomyelitis [Not Recovered/Not Resolved]
  - Tendonitis [Unknown]
  - Mitral valve incompetence [Unknown]
  - Tricuspid valve incompetence [Unknown]
  - Eustachian tube dysfunction [Unknown]
  - Dermatitis [Unknown]
  - Cataract [Unknown]
  - Pain [Unknown]
  - Organic erectile dysfunction [Unknown]
  - Gastrooesophageal reflux disease [Unknown]
  - Pollakiuria [Unknown]
  - Rhinitis [Unknown]
  - Flank pain [Unknown]
  - Lumbar radiculopathy [Unknown]
  - Pain in extremity [Unknown]
  - Metastases to bone [Unknown]
  - Presbyopia [Unknown]
  - Aortic disorder [Unknown]
